FAERS Safety Report 8449601-4 (Version None)
Quarter: 2012Q2

REPORT INFORMATION
  Report Type: 
  Country: None (occurrence: None)
  Receive Date: 20120620
  Receipt Date: 20120611
  Transmission Date: 20120825
  Serious: Yes (Hospitalization)
  Sender: FDA-Public Use
  Company Number: US-BIOGENIDEC-2012BI020551

PATIENT
  Age: 40 Year
  Sex: Female

DRUGS (2)
  1. TYSABRI [Suspect]
     Indication: MULTIPLE SCLEROSIS
     Route: 042
     Dates: start: 20070419, end: 20080319
  2. TYSABRI [Suspect]
     Route: 042
     Dates: start: 20090914

REACTIONS (3)
  - BLADDER PERFORATION [None]
  - UTERINE DISORDER [None]
  - PROCEDURAL COMPLICATION [None]
